FAERS Safety Report 15652077 (Version 3)
Quarter: 2018Q4

REPORT INFORMATION
  Report Type: Spontaneous
  Country: US (occurrence: US)
  Receive Date: 20181123
  Receipt Date: 20181221
  Transmission Date: 20190205
  Serious: Yes (Death, Hospitalization, Other)
  Sender: FDA-Public Use
  Company Number: US-TEVA-2018-US-977620

PATIENT
  Age: 44 Year
  Sex: Female

DRUGS (9)
  1. MESNA. [Suspect]
     Active Substance: MESNA
     Indication: MYXOID LIPOSARCOMA
     Dosage: 3 CYCLES
     Route: 065
  2. DECITABINE. [Suspect]
     Active Substance: DECITABINE
     Indication: MYELODYSPLASTIC SYNDROME
     Route: 065
  3. CYTARABINE. [Suspect]
     Active Substance: CYTARABINE
     Indication: ACUTE MYELOID LEUKAEMIA
     Route: 065
  4. DOXORUBICIN [Suspect]
     Active Substance: DOXORUBICIN
     Indication: MYXOID LIPOSARCOMA
     Dosage: 3 CYCLES AFTER RESECTION
     Route: 065
  5. TOPOTECAN [Suspect]
     Active Substance: TOPOTECAN HYDROCHLORIDE
     Indication: ACUTE MYELOID LEUKAEMIA
     Route: 065
  6. MESNA. [Suspect]
     Active Substance: MESNA
     Indication: MYXOID LIPOSARCOMA
     Dosage: 3 CYCLES AFTER RESECTION
     Route: 065
  7. DOXORUBICIN [Suspect]
     Active Substance: DOXORUBICIN
     Indication: MYXOID LIPOSARCOMA
     Dosage: 3 CYCLES
     Route: 065
  8. IFOSFAMIDE. [Suspect]
     Active Substance: IFOSFAMIDE
     Indication: MYXOID LIPOSARCOMA
     Dosage: 3 CYCLES
     Route: 065
  9. IFOSFAMIDE. [Suspect]
     Active Substance: IFOSFAMIDE
     Indication: MYXOID LIPOSARCOMA
     Dosage: 3 CYCLES AFTER RESECTION
     Route: 065

REACTIONS (3)
  - Myelodysplastic syndrome [Fatal]
  - Neoplasm progression [Fatal]
  - Acute myeloid leukaemia [Fatal]
